FAERS Safety Report 8791152 (Version 1)
Quarter: 2012Q4

REPORT INFORMATION
  Report Type: Spontaneous
  Country: US (occurrence: None)
  Receive Date: 20120913
  Receipt Date: 20120913
  Transmission Date: 20130627
  Serious: Yes (Disabling, Other)
  Sender: FDA-Public Use
  Company Number: None

PATIENT
  Sex: Female
  Weight: 70.31 kg

DRUGS (4)
  1. PROLIA [Suspect]
     Indication: OSTEOPENIA
     Dosage: Injection Every 6 Mo
     Dates: start: 20101116
  2. PROLIA [Suspect]
     Indication: OSTEOPENIA
     Dates: start: 20110517
  3. PROLIA [Suspect]
     Indication: OSTEOPENIA
     Dates: start: 20111206
  4. PROLIA [Suspect]
     Indication: OSTEOPENIA
     Dates: start: 20120607

REACTIONS (13)
  - Myalgia [None]
  - Back pain [None]
  - Musculoskeletal stiffness [None]
  - Bladder spasm [None]
  - Muscle spasms [None]
  - Cough [None]
  - Mobility decreased [None]
  - Activities of daily living impaired [None]
  - Loss of control of legs [None]
  - Pain [None]
  - Feeling abnormal [None]
  - Heart rate increased [None]
  - Palpitations [None]
